FAERS Safety Report 7388136-7 (Version None)
Quarter: 2011Q2

REPORT INFORMATION
  Report Type: 
  Country: None (occurrence: None)
  Receive Date: 20110401
  Receipt Date: 20101006
  Transmission Date: 20111010
  Serious: Yes (Other)
  Sender: FDA-Public Use
  Company Number: US-BAYER-201018050NA

PATIENT
  Sex: Female
  Weight: 55 kg

DRUGS (6)
  1. ADVAIR DISKUS 100/50 [Concomitant]
     Dates: start: 19970101
  2. ANTIBIOTICS [Concomitant]
  3. YAZ [Suspect]
     Indication: MENSTRUATION IRREGULAR
     Route: 048
     Dates: start: 20070607, end: 20080220
  4. STEROIDS [Concomitant]
  5. YAZ [Suspect]
     Indication: PREMENSTRUAL SYNDROME
  6. ZYRTEC [Concomitant]
     Dates: start: 19970101

REACTIONS (7)
  - CHOLELITHIASIS [None]
  - PROCEDURAL PAIN [None]
  - SCAR [None]
  - DIARRHOEA [None]
  - CHOLECYSTITIS CHRONIC [None]
  - ABDOMINAL PAIN [None]
  - FOOD INTOLERANCE [None]
